FAERS Safety Report 4755969-2 (Version None)
Quarter: 2005Q3

REPORT INFORMATION
  Report Type: 
  Country: None (occurrence: None)
  Receive Date: 20050830
  Receipt Date: 20050819
  Transmission Date: 20060218
  Serious: Yes (Other)
  Sender: FDA-Public Use
  Company Number: PHBS2005CA12235

PATIENT
  Sex: Female

DRUGS (7)
  1. LESCOL [Suspect]
     Indication: BLOOD CHOLESTEROL INCREASED
     Route: 048
     Dates: start: 20010901, end: 20050601
  2. SLEEPING TABLETS [Concomitant]
  3. VOLTAREN [Concomitant]
     Indication: PALINDROMIC RHEUMATISM
  4. TYLENOL W/ CODEINE NO. 3 [Concomitant]
     Indication: BACK PAIN
     Dosage: 3 DF/DAY
  5. MAXERAN [Concomitant]
     Dosage: 30 MG/DAY
  6. NOVASEN [Concomitant]
     Dosage: UNK, QD
  7. TIAZAC [Concomitant]
     Dosage: 180 MG/DAY

REACTIONS (5)
  - ASTHENIA [None]
  - CHILLS [None]
  - CONSTIPATION [None]
  - MYALGIA [None]
  - PYREXIA [None]
